FAERS Safety Report 5300673-5 (Version None)
Quarter: 2007Q2

REPORT INFORMATION
  Report Type: 
  Country: None (occurrence: None)
  Receive Date: 20070418
  Receipt Date: 20070409
  Transmission Date: 20071010
  Serious: Yes (Other)
  Sender: FDA-Public Use
  Company Number: US-JNJFOC-20061201645

PATIENT
  Age: 46 Year
  Sex: Female
  Weight: 53.52 kg

DRUGS (2)
  1. LEVAQUIN [Suspect]
     Indication: PROPHYLAXIS
     Route: 048
  2. PREVACID [Concomitant]
     Indication: DYSPEPSIA
     Route: 065

REACTIONS (8)
  - CARDIAC MURMUR [None]
  - DRUG ADMINISTRATION ERROR [None]
  - DYSPEPSIA [None]
  - GLOSSITIS [None]
  - GLOSSODYNIA [None]
  - OESOPHAGEAL DISORDER [None]
  - OESOPHAGEAL SPASM [None]
  - THROAT IRRITATION [None]
